FAERS Safety Report 14482725 (Version 1)
Quarter: 2018Q1

REPORT INFORMATION
  Report Type: Spontaneous
  Country: HR (occurrence: HR)
  Receive Date: 20180203
  Receipt Date: 20180203
  Transmission Date: 20180509
  Serious: Yes (Other)
  Sender: FDA-Public Use
  Company Number: HR-TEVA-2018-HR-851262

PATIENT
  Sex: Female

DRUGS (3)
  1. CERSON [Suspect]
     Active Substance: NITRAZEPAM
     Route: 048
     Dates: start: 20170927, end: 20170927
  2. VOLTAREN [Suspect]
     Active Substance: DICLOFENAC SODIUM
     Route: 048
     Dates: start: 20170927, end: 20170927
  3. NORMABEL [Suspect]
     Active Substance: DIAZEPAM
     Route: 048
     Dates: start: 20170927, end: 20170927

REACTIONS (2)
  - No adverse event [Unknown]
  - Suicide attempt [Unknown]

NARRATIVE: CASE EVENT DATE: 20170927
